FAERS Safety Report 10036039 (Version 1)
Quarter: 2014Q1

REPORT INFORMATION
  Report Type: Spontaneous
  Country: US (occurrence: US)
  Receive Date: 20140325
  Receipt Date: 20140325
  Transmission Date: 20141002
  Serious: Yes (Death)
  Sender: FDA-Public Use
  Company Number: US-BAYER-2014-040812

PATIENT
  Sex: Male

DRUGS (1)
  1. ALKA-SELTZER PLUS COLD FORMULA NIGHT [Suspect]
     Dosage: UNK
     Dates: start: 2013

REACTIONS (1)
  - Death [Fatal]
